FAERS Safety Report 4529511-5 (Version None)
Quarter: 2004Q4

REPORT INFORMATION
  Report Type: 
  Country: None (occurrence: None)
  Receive Date: 20041214
  Receipt Date: 20041129
  Transmission Date: 20050328
  Serious: Yes (Other)
  Sender: FDA-Public Use
  Company Number: US-JNJFOC-20041106664

PATIENT
  Age: 18 Year
  Sex: Male

DRUGS (2)
  1. IMODIUM A-D [Suspect]
     Indication: DIARRHOEA
     Dosage: 1 CAPLET
     Dates: start: 20041126, end: 20041126
  2. PEPTO BISMOL (BISMUTH SUBSALICYLATE) TABLETS [Suspect]
     Indication: DIARRHOEA
     Dosage: 4 TABLETS

REACTIONS (1)
  - CONVULSION [None]
